FAERS Safety Report 10089465 (Version 1)
Quarter: 2014Q2

REPORT INFORMATION
  Report Type: Spontaneous
  Country: US (occurrence: None)
  Receive Date: 20140418
  Receipt Date: 20140418
  Transmission Date: 20141212
  Serious: Yes (Other)
  Sender: FDA-Public Use
  Company Number: None

PATIENT
  Age: 44 Year
  Sex: Female
  Weight: 77.11 kg

DRUGS (1)
  1. COPAXONE [Suspect]
     Indication: MULTIPLE SCLEROSIS
     Route: 058
     Dates: start: 201312

REACTIONS (10)
  - Hypersensitivity [None]
  - Oral discomfort [None]
  - Erythema [None]
  - Flushing [None]
  - Urticaria [None]
  - Pruritus [None]
  - Head discomfort [None]
  - Ear disorder [None]
  - Heart rate increased [None]
  - Hyperhidrosis [None]
